FAERS Safety Report 5113469-4 (Version None)
Quarter: 2006Q3

REPORT INFORMATION
  Report Type: 
  Country: None (occurrence: None)
  Receive Date: 20060921
  Receipt Date: 20060911
  Transmission Date: 20061208
  Serious: Yes (Hospitalization, Other)
  Sender: FDA-Public Use
  Company Number: 2006111077

PATIENT
  Sex: Female
  Weight: 54.4316 kg

DRUGS (2)
  1. LYRICA [Suspect]
     Indication: NEUROPATHY PERIPHERAL
     Dosage: 150 MG (75 MG, 2 IN 1 D)
     Dates: end: 20060901
  2. MODICON (ETHINYLESTRADIOL, NORETHISTERONE) [Concomitant]

REACTIONS (1)
  - PSYCHOTIC DISORDER [None]
